FAERS Safety Report 4320141-7 (Version None)
Quarter: 2004Q1

REPORT INFORMATION
  Report Type: 
  Country: None (occurrence: None)
  Receive Date: 20040317
  Receipt Date: 20040309
  Transmission Date: 20041129
  Serious: Yes (Other)
  Sender: FDA-Public Use
  Company Number: FRWYE471418DEC03

PATIENT
  Age: 63 Year
  Sex: Female

DRUGS (8)
  1. EFFEXOR XR [Suspect]
     Indication: DEPRESSION
     Dosage: 37.5 MG 4X PER 1 DAY ORAL : 37.5 MG 3X PER 1 DAY ORAL
     Route: 048
     Dates: end: 20031201
  2. CORVASAL (MOLSIDOMINE) [Concomitant]
  3. CLONAZEPAM [Concomitant]
  4. DIAFUSOR (GLYCERYL TRINITRATE) [Concomitant]
  5. LASIX [Concomitant]
  6. OGAST (LANSOPRAZOLE) [Concomitant]
  7. POTASSIUM CHLORIDE [Concomitant]
  8. TRAMADOL HCL [Concomitant]

REACTIONS (3)
  - DRUG INTERACTION [None]
  - INTERNATIONAL NORMALISED RATIO DECREASED [None]
  - PULMONARY EMBOLISM [None]
